FAERS Safety Report 4546710-7 (Version None)
Quarter: 2005Q1

REPORT INFORMATION
  Report Type: 
  Country: None (occurrence: None)
  Receive Date: 20050105
  Receipt Date: 20041227
  Transmission Date: 20050727
  Serious: Yes (Other)
  Sender: FDA-Public Use
  Company Number: OMPQ-NO-04128-1464

PATIENT
  Age: 75 Year
  Sex: Male

DRUGS (3)
  1. OMNIPAQUE 140 [Suspect]
     Dosage: 100 ML, SINGLE DOSE, I.V.
     Route: 042
     Dates: start: 20041213, end: 20041213
  2. PANIPENEM / BETAMIPRON (CARBENIN) [Concomitant]
  3. CLARITHROMYCIN [Concomitant]

REACTIONS (1)
  - THROMBOCYTOPENIA [None]
